FAERS Safety Report 24713243 (Version 1)
Quarter: 2024Q4

REPORT INFORMATION
  Report Type: Spontaneous
  Country: US (occurrence: US)
  Receive Date: 20241209
  Receipt Date: 20241209
  Transmission Date: 20250114
  Serious: No
  Sender: REGENERON
  Company Number: US-REGENERON PHARMACEUTICALS, INC.-2023-156028

PATIENT
  Sex: Male

DRUGS (3)
  1. EYLEA [Suspect]
     Active Substance: AFLIBERCEPT
     Indication: Diabetic retinopathy
     Dosage: 2 MG, EVERY 4 WEEKS INTO BOTH EYES (FORMULATION: 2MG, PFS (GERRESHEIMER))
  2. EYLEA [Suspect]
     Active Substance: AFLIBERCEPT
     Indication: Diabetic retinal oedema
     Dosage: 2 MG, EVERY 6 WEEKS INTO BOTH EYES (FORMULATION:2MG, PFS (GERRESHEIMER))
  3. EYLEA [Suspect]
     Active Substance: AFLIBERCEPT
     Indication: Glaucoma
     Dosage: 2 MG, EVERY 8 WEEKS INTO BOTH EYES (FORMULATION:2MG, PFS (GERRESHEIMER))
     Dates: start: 20231027

REACTIONS (2)
  - Off label use [Not Recovered/Not Resolved]
  - Wrong technique in product usage process [Unknown]
